FAERS Safety Report 11191918 (Version 1)
Quarter: 2015Q2

REPORT INFORMATION
  Report Type: Spontaneous
  Country: US (occurrence: None)
  Receive Date: 20150615
  Receipt Date: 20150615
  Transmission Date: 20150821
  Serious: No
  Sender: FDA-Public Use
  Company Number: None

PATIENT
  Age: 57 Year
  Sex: Female

DRUGS (8)
  1. IBRANCE [Suspect]
     Active Substance: PALBOCICLIB
     Indication: BREAST CANCER
     Dosage: 125 MG, DAILY FOR 21 DAYS
     Route: 048
     Dates: start: 20150522
  2. LETROZOLE 2.5MG [Suspect]
     Active Substance: LETROZOLE
     Indication: BREAST CANCER
     Route: 048
     Dates: start: 20150522
  3. FROVA [Concomitant]
     Active Substance: FROVATRIPTAN SUCCINATE
  4. SULFAMETHOX [Concomitant]
  5. NORTRIPTYLINE [Concomitant]
     Active Substance: NORTRIPTYLINE
  6. CALCIUM [Concomitant]
     Active Substance: CALCIUM
  7. CEPHALEXIN. [Concomitant]
     Active Substance: CEPHALEXIN
  8. SELENIUM [Concomitant]
     Active Substance: SELENIUM

REACTIONS (2)
  - Migraine [None]
  - Hot flush [None]

NARRATIVE: CASE EVENT DATE: 20150526
